FAERS Safety Report 12037007 (Version 1)
Quarter: 2016Q1

REPORT INFORMATION
  Report Type: Spontaneous
  Country: None (occurrence: None)
  Receive Date: 20160204
  Receipt Date: 20160204
  Transmission Date: 20160526
  Serious: No
  Sender: FDA-Public Use
  Company Number: None

PATIENT
  Age: 57 Year
  Sex: Male

DRUGS (3)
  1. TOUJEO [Suspect]
     Active Substance: INSULIN GLARGINE
  2. GLIMEPIRIDE. [Suspect]
     Active Substance: GLIMEPIRIDE
  3. METFORMIN [Suspect]
     Active Substance: METFORMIN HYDROCHLORIDE

REACTIONS (6)
  - Stress [None]
  - Blood glucose increased [None]
  - Weight decreased [None]
  - Hunger [None]
  - Glaucoma [None]
  - Neuropathy peripheral [None]
